FAERS Safety Report 20772626 (Version 2)
Quarter: 2022Q2

REPORT INFORMATION
  Report Type: Report from Study
  Country: US (occurrence: US)
  Receive Date: 20220502
  Receipt Date: 20220527
  Transmission Date: 20220720
  Serious: No
  Sender: FDA-Public Use
  Company Number: US-BIOVITRUM-2022US05709

PATIENT
  Sex: Female

DRUGS (1)
  1. KINERET [Suspect]
     Active Substance: ANAKINRA
     Indication: Off label use
     Route: 058
     Dates: start: 20220413

REACTIONS (5)
  - Dysphonia [Recovered/Resolved]
  - Eye pruritus [Recovered/Resolved]
  - Menstruation irregular [Unknown]
  - Hypersensitivity [Unknown]
  - Rash [Recovering/Resolving]
